FAERS Safety Report 16646577 (Version 1)
Quarter: 2019Q3

REPORT INFORMATION
  Report Type: Spontaneous
  Country: US (occurrence: US)
  Receive Date: 20190616
  Receipt Date: 20190616
  Transmission Date: 20191004
  Serious: No
  Sender: FDA-Public Use
  Company Number: None

PATIENT
  Age: 61 Year
  Sex: Female

DRUGS (1)
  1. EPCLUSA [Suspect]
     Active Substance: SOFOSBUVIR\VELPATASVIR

REACTIONS (8)
  - Insomnia [None]
  - Nausea [None]
  - Depression [None]
  - Fatigue [None]
  - Irritability [None]
  - Memory impairment [None]
  - Hallucination [None]
  - Headache [None]

NARRATIVE: CASE EVENT DATE: 20190616
